FAERS Safety Report 8479893-7 (Version None)
Quarter: 2012Q2

REPORT INFORMATION
  Report Type: 
  Country: None (occurrence: None)
  Receive Date: 20120629
  Receipt Date: 20120620
  Transmission Date: 20120825
  Serious: Yes (Hospitalization)
  Sender: FDA-Public Use
  Company Number: CA-ABBOTT-12P-028-0948032-00

PATIENT
  Sex: Female
  Weight: 42.676 kg

DRUGS (3)
  1. HUMIRA [Suspect]
     Indication: CROHN'S DISEASE
     Route: 058
     Dates: start: 20060207
  2. HUMIRA [Suspect]
     Dosage: LOADING DOSE
     Route: 058
     Dates: start: 20120531, end: 20120531
  3. HUMIRA [Suspect]
     Dosage: LOADING DOSE
     Route: 058
     Dates: start: 20120614

REACTIONS (5)
  - CONSTIPATION [None]
  - ARTHRITIS [None]
  - MIGRAINE [None]
  - INTESTINAL OBSTRUCTION [None]
  - HEADACHE [None]
